FAERS Safety Report 25810787 (Version 1)
Quarter: 2025Q3

REPORT INFORMATION
  Report Type: Spontaneous
  Country: US (occurrence: US)
  Receive Date: 20250917
  Receipt Date: 20250917
  Transmission Date: 20251020
  Serious: No
  Sender: ALEXION PHARMACEUTICALS
  Company Number: US-AstraZeneca-CH-00950778A

PATIENT
  Sex: Female

DRUGS (1)
  1. TAGRISSO [Suspect]
     Active Substance: OSIMERTINIB
     Route: 065

REACTIONS (10)
  - Pyrexia [Unknown]
  - Diarrhoea [Unknown]
  - Abdominal distension [Unknown]
  - Pain of skin [Unknown]
  - Oedema peripheral [Unknown]
  - Feeling abnormal [Unknown]
  - Dry mouth [Unknown]
  - Muscular weakness [Unknown]
  - Rash [Unknown]
  - Pruritus [Unknown]
